FAERS Safety Report 11399265 (Version 1)
Quarter: 2015Q3

REPORT INFORMATION
  Report Type: Spontaneous
  Country: PL (occurrence: PL)
  Receive Date: 20150820
  Receipt Date: 20150820
  Transmission Date: 20151125
  Serious: Yes (Other)
  Sender: FDA-Public Use
  Company Number: PL-TEVA-587383ISR

PATIENT
  Age: 88 Year
  Sex: Female

DRUGS (1)
  1. OLFEN UNO [Suspect]
     Active Substance: DICLOFENAC SODIUM
     Indication: ARTHRALGIA
     Route: 048

REACTIONS (6)
  - Decreased appetite [Recovered/Resolved]
  - Dysgeusia [Unknown]
  - Diarrhoea [Recovered/Resolved]
  - Anosmia [Recovered/Resolved]
  - Tongue coated [Unknown]
  - Cough [Recovered/Resolved]
